FAERS Safety Report 17149299 (Version 1)
Quarter: 2019Q4

REPORT INFORMATION
  Report Type: Spontaneous
  Country: US (occurrence: US)
  Receive Date: 20191213
  Receipt Date: 20191213
  Transmission Date: 20200122
  Serious: No
  Sender: FDA-Public Use
  Company Number: US-CELGENEUS-USA-20191203310

PATIENT
  Age: 53 Year
  Sex: Female

DRUGS (1)
  1. OTEZLA [Suspect]
     Active Substance: APREMILAST
     Indication: PSORIASIS
     Dosage: 60 MILLIGRAM
     Route: 048
     Dates: start: 20181001

REACTIONS (5)
  - Bone pain [Unknown]
  - Somnolence [Unknown]
  - Psoriasis [Unknown]
  - Depression [Unknown]
  - Product dose omission [Unknown]

NARRATIVE: CASE EVENT DATE: 20191115
